FAERS Safety Report 5876080-3 (Version None)
Quarter: 2008Q3

REPORT INFORMATION
  Report Type: 
  Country: None (occurrence: None)
  Receive Date: 20080910
  Receipt Date: 20080902
  Transmission Date: 20090109
  Serious: Yes (Life-Threatening, Hospitalization)
  Sender: FDA-Public Use
  Company Number: US-PURDUE-USA_2008_0034192

PATIENT
  Age: 38 Year
  Sex: Female
  Weight: 59 kg

DRUGS (1)
  1. OXYCONTIN [Suspect]
     Indication: ABDOMINAL PAIN
     Dosage: UNK, SEE TEXT
     Route: 048
     Dates: start: 20080630, end: 20080830

REACTIONS (4)
  - DEPRESSED LEVEL OF CONSCIOUSNESS [None]
  - INTENTIONAL DRUG MISUSE [None]
  - OVERDOSE [None]
  - PNEUMONIA ASPIRATION [None]
